FAERS Safety Report 5449997-1 (Version None)
Quarter: 2007Q3

REPORT INFORMATION
  Report Type: 
  Country: None (occurrence: None)
  Receive Date: 20070912
  Receipt Date: 20070907
  Transmission Date: 20080115
  Serious: Yes (Life-Threatening)
  Sender: FDA-Public Use
  Company Number: GBWYE267105SEP07

PATIENT
  Age: 10 Year
  Sex: Male
  Weight: 30 kg

DRUGS (12)
  1. SIROLIMUS [Suspect]
     Indication: KIDNEY TRANSPLANT REJECTION
     Dosage: 3MG, FREQUENCY UNKNOWN
     Route: 048
     Dates: start: 20070710, end: 20070805
  2. ALFACALCIDOL [Concomitant]
     Indication: BONE DISORDER
     Route: 048
     Dates: start: 20070601
  3. BENDROFLUAZIDE [Concomitant]
     Indication: HYPERTENSION
     Route: 048
     Dates: start: 20070401
  4. CO-TRIMOXAZOLE [Concomitant]
     Indication: INFECTION PROPHYLAXIS
     Dosage: 240MG, FREQUENCY UNKNOWN
     Route: 048
     Dates: start: 20070601
  5. SODIUM BICARBONATE [Concomitant]
     Indication: ACIDOSIS
     Dosage: 20MMOL, FREQUENCY UNKNOWN
     Dates: start: 20070501
  6. NEORECORMON [Concomitant]
     Indication: NEPHROGENIC ANAEMIA
     Dosage: 2500DF, ONCE A WEEK
     Route: 058
     Dates: start: 20070601
  7. NIFEDIPINE [Concomitant]
     Indication: HYPERTENSION
     Route: 048
     Dates: start: 20070401
  8. NYSTATIN [Concomitant]
     Indication: INFECTION PROPHYLAXIS
     Route: 048
  9. PREDNISOLONE [Concomitant]
     Indication: KIDNEY TRANSPLANT REJECTION
     Route: 048
     Dates: start: 20070401
  10. RANITIDINE [Concomitant]
     Indication: STEROID THERAPY
     Route: 048
     Dates: start: 20070401
  11. TACROLIMUS [Suspect]
     Indication: RENAL TRANSPLANT
     Dosage: 7MG, FREQUENCY UNKNOWN
     Route: 048
     Dates: start: 20040101, end: 20070805
  12. MAGNESIUM GLYCEROPHOSPHATE [Concomitant]
     Indication: BLOOD MAGNESIUM DECREASED
     Route: 048
     Dates: start: 20070501

REACTIONS (2)
  - MALIGNANT HYPERTENSION [None]
  - REVERSIBLE POSTERIOR LEUKOENCEPHALOPATHY SYNDROME [None]
